FAERS Safety Report 10172724 (Version 1)
Quarter: 2014Q2

REPORT INFORMATION
  Report Type: Report from Study
  Country: DE (occurrence: DE)
  Receive Date: 20140515
  Receipt Date: 20140515
  Transmission Date: 20141212
  Serious: Yes (Life-Threatening, Hospitalization)
  Sender: FDA-Public Use
  Company Number: DE-ROCHE-1401345

PATIENT
  Age: 31 Year
  Sex: Male
  Weight: 67 kg

DRUGS (2)
  1. PEG-INTERFERON ALFA 2A [Suspect]
     Indication: CHRONIC HEPATITIS C
     Route: 058
     Dates: start: 20130627
  2. REBETOL [Suspect]
     Indication: CHRONIC HEPATITIS C
     Route: 048
     Dates: start: 20130627

REACTIONS (1)
  - Pneumothorax spontaneous [Not Recovered/Not Resolved]
